FAERS Safety Report 14511428 (Version 2)
Quarter: 2018Q2

REPORT INFORMATION
  Report Type: Spontaneous
  Country: FR (occurrence: FR)
  Receive Date: 20180209
  Receipt Date: 20180628
  Transmission Date: 20180711
  Serious: Yes (Hospitalization)
  Sender: FDA-Public Use
  Company Number: FR-ASTRAZENECA-2018SE14660

PATIENT
  Age: 52 Year
  Sex: Male
  Weight: 113 kg

DRUGS (6)
  1. SERESTA [Concomitant]
     Active Substance: OXAZEPAM
     Route: 048
  2. BACLOFEN. [Concomitant]
     Active Substance: BACLOFEN
     Route: 048
  3. QUETIAPINE. [Suspect]
     Active Substance: QUETIAPINE
     Indication: MOOD SWINGS
     Route: 048
     Dates: start: 2015
  4. THERALENE [Suspect]
     Active Substance: TRIMEPRAZINE
     Indication: INSOMNIA
     Route: 048
     Dates: start: 20180108
  5. PANTOPRAZOLE [Concomitant]
     Active Substance: PANTOPRAZOLE
     Route: 048
  6. QUETIAPINE. [Suspect]
     Active Substance: QUETIAPINE
     Indication: MOOD SWINGS
     Dosage: DOSE REDUCED
     Route: 048

REACTIONS (3)
  - Rhabdomyolysis [Recovered/Resolved]
  - Hepatocellular injury [Recovered/Resolved]
  - Blood creatine phosphokinase increased [Recovered/Resolved]

NARRATIVE: CASE EVENT DATE: 20180109
